FAERS Safety Report 7811110-0 (Version None)
Quarter: 2011Q4

REPORT INFORMATION
  Report Type: 
  Country: None (occurrence: None)
  Receive Date: 20111013
  Receipt Date: 20111007
  Transmission Date: 20120403
  Serious: Yes (Death)
  Sender: FDA-Public Use
  Company Number: US-CELGENEUS-163-21880-11100866

PATIENT
  Sex: Male

DRUGS (19)
  1. ASPIRIN [Concomitant]
     Dosage: 81 MILLIGRAM
     Route: 048
  2. NITROSTAT [Concomitant]
     Dosage: .4 MILLIGRAM
     Route: 060
  3. TYLENOL W/ CODEINE NO. 3 [Concomitant]
     Route: 048
  4. VYTORIN [Concomitant]
     Dosage: 10-10MG
     Route: 048
  5. CENTRUM [Concomitant]
     Route: 048
  6. SYNTHROID [Concomitant]
     Dosage: 88 MICROGRAM
     Route: 048
  7. CHLORTHALIDONE [Concomitant]
     Dosage: 25 MILLIGRAM
     Route: 048
  8. MECLIZINE [Concomitant]
     Dosage: 25 MILLIGRAM
     Route: 048
  9. PROCHLORPERAZINE [Concomitant]
     Dosage: 5 MILLIGRAM
     Route: 048
  10. VITAMIN B-12 [Concomitant]
     Dosage: 250 MICROGRAM
     Route: 048
  11. EXJADE [Concomitant]
     Dosage: 125 MILLIGRAM
     Route: 048
  12. FELODIPINE [Concomitant]
     Dosage: 10 MILLIGRAM
     Route: 048
  13. NEURONTIN [Concomitant]
     Dosage: 300 MILLIGRAM
     Route: 048
  14. UROXATRAL [Concomitant]
     Dosage: 10 MILLIGRAM
     Route: 048
  15. REVLIMID [Suspect]
     Indication: MYELODYSPLASTIC SYNDROME
     Dosage: 10 MILLIGRAM
     Route: 048
     Dates: start: 20110201, end: 20110101
  16. AMBIEN [Concomitant]
     Dosage: 5 MILLIGRAM
     Route: 048
  17. LANTUS [Concomitant]
     Dosage: 100/ML
     Route: 065
  18. NOVOLIN R [Concomitant]
     Route: 065
  19. ONDANSETRON [Concomitant]
     Dosage: 8 MILLIGRAM
     Route: 048

REACTIONS (1)
  - DEATH [None]
